FAERS Safety Report 5894095-6 (Version None)
Quarter: 2008Q3

REPORT INFORMATION
  Report Type: 
  Country: None (occurrence: None)
  Receive Date: 20080923
  Receipt Date: 20080118
  Transmission Date: 20090109
  Serious: No
  Sender: FDA-Public Use
  Company Number: US-ASTRAZENECA-2007UW29000

PATIENT
  Age: 31 Year
  Sex: Male
  Weight: 113.4 kg

DRUGS (3)
  1. SEROQUEL [Suspect]
     Route: 048
     Dates: start: 20071219
  2. PROZAC [Concomitant]
     Dates: start: 20071227
  3. TRAZEPAM [Concomitant]
     Route: 048

REACTIONS (3)
  - ORAL DISORDER [None]
  - RESTLESS LEGS SYNDROME [None]
  - SOMNOLENCE [None]
